FAERS Safety Report 5760616-7 (Version None)
Quarter: 2008Q2

REPORT INFORMATION
  Report Type: 
  Country: None (occurrence: None)
  Receive Date: 20080602
  Receipt Date: 20080520
  Transmission Date: 20081010
  Serious: Yes (Death, Hospitalization)
  Sender: FDA-Public Use
  Company Number: 2008S106716

PATIENT
  Age: 58 Year
  Sex: Female
  Weight: 45.8133 kg

DRUGS (2)
  1. FUROSEMIDE [Suspect]
     Indication: FLUID RETENTION
     Dosage: 20 MG;DAILY;ORAL
     Route: 048
     Dates: start: 20080407, end: 20080417
  2. THYROID TAB [Concomitant]

REACTIONS (9)
  - ASTHENIA [None]
  - DISORIENTATION [None]
  - DIZZINESS [None]
  - FATIGUE [None]
  - IMPAIRED DRIVING ABILITY [None]
  - LOSS OF CONSCIOUSNESS [None]
  - MEDICATION ERROR [None]
  - ROAD TRAFFIC ACCIDENT [None]
  - SUDDEN ONSET OF SLEEP [None]
